FAERS Safety Report 10222259 (Version 3)
Quarter: 2014Q3

REPORT INFORMATION
  Report Type: Spontaneous
  Country: FR (occurrence: AU)
  Receive Date: 20140606
  Receipt Date: 20140724
  Transmission Date: 20150326
  Serious: Yes (Other)
  Sender: FDA-Public Use
  Company Number: FR-GLAXOSMITHKLINE-B0999288A

PATIENT
  Sex: Female

DRUGS (1)
  1. ZINNAT [Suspect]
     Active Substance: CEFUROXIME AXETIL
     Indication: OROPHARYNGEAL PAIN
     Dosage: 250MG UNKNOWN
     Route: 048
     Dates: start: 201405, end: 201405

REACTIONS (3)
  - Angioedema [Recovered/Resolved]
  - Product quality issue [Unknown]
  - Erythema [Unknown]

NARRATIVE: CASE EVENT DATE: 201405
